FAERS Safety Report 21252007 (Version 1)
Quarter: 2022Q3

REPORT INFORMATION
  Report Type: Spontaneous
  Country: US (occurrence: US)
  Receive Date: 20220825
  Receipt Date: 20220825
  Transmission Date: 20221027
  Serious: No
  Sender: FDA-Public Use
  Company Number: US-BAUSCH-BL-2022-020326

PATIENT
  Sex: Male

DRUGS (6)
  1. MESTINON [Suspect]
     Active Substance: PYRIDOSTIGMINE BROMIDE
     Indication: Product used for unknown indication
     Route: 065
     Dates: start: 202103
  2. SOLIRIS [Suspect]
     Active Substance: ECULIZUMAB
     Indication: Myasthenia gravis
     Route: 065
     Dates: start: 202111
  3. SOLIRIS [Suspect]
     Active Substance: ECULIZUMAB
     Route: 042
  4. SOLIRIS [Suspect]
     Active Substance: ECULIZUMAB
     Route: 042
     Dates: end: 20220614
  5. SOLIRIS [Suspect]
     Active Substance: ECULIZUMAB
     Route: 042
     Dates: start: 20220712
  6. PREDNISONE [Concomitant]
     Active Substance: PREDNISONE
     Indication: Product used for unknown indication
     Dates: start: 202104

REACTIONS (8)
  - Myasthenia gravis [Recovering/Resolving]
  - Condition aggravated [Recovering/Resolving]
  - Diplopia [Recovering/Resolving]
  - Dyspnoea [Recovering/Resolving]
  - Myalgia [Recovering/Resolving]
  - Fatigue [Recovering/Resolving]
  - Diarrhoea [Recovered/Resolved]
  - Nausea [Recovered/Resolved]

NARRATIVE: CASE EVENT DATE: 20220601
